FAERS Safety Report 19211223 (Version 2)
Quarter: 2021Q3

REPORT INFORMATION
  Report Type: Report from Study
  Country: None (occurrence: US)
  Receive Date: 20210504
  Receipt Date: 20210723
  Transmission Date: 20211014
  Serious: Yes (Other)
  Sender: FDA-Public Use
  Company Number: US-ABBVIE-21K-163-3882108-00

PATIENT
  Sex: Female

DRUGS (1)
  1. HUMIRA [Suspect]
     Active Substance: ADALIMUMAB
     Indication: RHEUMATOID ARTHRITIS
     Dosage: CF
     Route: 058

REACTIONS (8)
  - Injection site swelling [Unknown]
  - Injection site pain [Unknown]
  - Palpitations [Unknown]
  - Injection site pruritus [Unknown]
  - Femur fracture [Not Recovered/Not Resolved]
  - Fall [Not Recovered/Not Resolved]
  - Meniscus injury [Not Recovered/Not Resolved]
  - Rheumatoid arthritis [Unknown]
